FAERS Safety Report 8515564-6 (Version None)
Quarter: 2012Q3

REPORT INFORMATION
  Report Type: 
  Country: None (occurrence: None)
  Receive Date: 20120717
  Receipt Date: 20120710
  Transmission Date: 20120928
  Serious: Yes (Other)
  Sender: FDA-Public Use
  Company Number: PHEH2012US013646

PATIENT
  Sex: Female
  Weight: 88.889 kg

DRUGS (6)
  1. ACETAMINOPHEN [Concomitant]
     Dosage: 325 MG, UNK
  2. TASIGNA [Suspect]
     Dosage: 150 MG, BID
     Route: 048
     Dates: start: 20120704
  3. METOPROLOL TARTRATE [Concomitant]
     Dosage: 50 MG, UNK
  4. HYDROCHLOROTHIAZIDE [Concomitant]
     Dosage: 12.5 MG, UNK
  5. TASIGNA [Suspect]
     Dosage: 300 MG, BID
     Route: 048
  6. AMLODIPINE [Concomitant]
     Dosage: 5 MG, UNK

REACTIONS (4)
  - FATIGUE [None]
  - BONE MARROW DISORDER [None]
  - GINGIVAL BLEEDING [None]
  - DRUG LEVEL INCREASED [None]
